FAERS Safety Report 24440809 (Version 2)
Quarter: 2024Q4

REPORT INFORMATION
  Report Type: Report from Study
  Country: CA (occurrence: CA)
  Receive Date: 20241016
  Receipt Date: 20241017
  Transmission Date: 20250114
  Serious: No
  Sender: ROCHE
  Company Number: CA-ROCHE-3448109

PATIENT
  Sex: Male

DRUGS (1)
  1. HEMLIBRA [Suspect]
     Active Substance: EMICIZUMAB-KXWH
     Indication: Factor VIII deficiency
     Dosage: MORE DOSAGE INFORMATION IS 3 MG/KG/WEEK FOR 4 WEEKS AND THEN 1.5 MG/KG/OTHER WEEK
     Route: 058
     Dates: start: 20200115

REACTIONS (11)
  - Syringe issue [Unknown]
  - Injection site pain [Unknown]
  - Needle issue [Unknown]
  - Product quality issue [Unknown]
  - Incorrect drug administration rate [Unknown]
  - Device issue [Unknown]
  - Wound [Unknown]
  - Product quality issue [Unknown]
  - Product use issue [Unknown]
  - Wrong technique in product usage process [Unknown]
  - Ill-defined disorder [Unknown]
